FAERS Safety Report 26024266 (Version 2)
Quarter: 2025Q4

REPORT INFORMATION
  Report Type: Spontaneous
  Country: CN (occurrence: CN)
  Receive Date: 20251111
  Receipt Date: 20251215
  Transmission Date: 20260117
  Serious: Yes (Other)
  Sender: ORGANON
  Company Number: CN-BAT-2025BAT001173

PATIENT
  Age: 1 Year
  Sex: Male
  Weight: 12.4 kg

DRUGS (2)
  1. TOCILIZUMAB-BAVI [Suspect]
     Active Substance: TOCILIZUMAB-BAVI
     Indication: Acute necrotising encephalopathy
     Dosage: 150.00 MG, QD
     Dates: start: 20251030, end: 20251030
  2. SODIUM CHLORIDE [Concomitant]
     Active Substance: SODIUM CHLORIDE
     Indication: Vehicle solution use
     Dosage: 50.00 ML, QD (INJECTION IN PUMP)
     Dates: start: 20251030, end: 20251030

REACTIONS (5)
  - Tachycardia [Recovering/Resolving]
  - Rash erythematous [Recovering/Resolving]
  - Eyelid oedema [Recovering/Resolving]
  - Tachypnoea [Unknown]
  - Product use in unapproved indication [Unknown]

NARRATIVE: CASE EVENT DATE: 20251030
